FAERS Safety Report 10409446 (Version 1)
Quarter: 2014Q2

REPORT INFORMATION
  Report Type: Spontaneous
  Country: US (occurrence: None)
  Receive Date: 20140530
  Receipt Date: 20140530
  Transmission Date: 20141212
  Serious: No
  Sender: FDA-Public Use
  Company Number: 227250LEO

PATIENT
  Sex: Male

DRUGS (1)
  1. PICATO (INGENOL MEBUTATE) (0.015 %, GEL) [Suspect]
     Indication: ACTINIC KERATOSIS
     Dosage: (FOR 3 DAYS), TOPICAL
     Route: 061
     Dates: start: 20140418, end: 20140420

REACTIONS (4)
  - Application site burn [None]
  - Application site pain [None]
  - Application site pain [None]
  - Application site exfoliation [None]
